FAERS Safety Report 24942318 (Version 1)
Quarter: 2025Q1

REPORT INFORMATION
  Report Type: Spontaneous
  Country: BR (occurrence: BR)
  Receive Date: 20250207
  Receipt Date: 20250207
  Transmission Date: 20250409
  Serious: Yes (Hospitalization)
  Sender: JOHNSON AND JOHNSON
  Company Number: BR-JNJFOC-20250177773

PATIENT
  Age: 69 Year
  Sex: Male

DRUGS (1)
  1. HALOPERIDOL DECANOATE [Suspect]
     Active Substance: HALOPERIDOL DECANOATE
     Indication: Dementia Alzheimer^s type
     Route: 030

REACTIONS (8)
  - Gait inability [Unknown]
  - Speech disorder [Unknown]
  - Feeding disorder [Unknown]
  - Sedation complication [Unknown]
  - Accidental overdose [Unknown]
  - Bedridden [Unknown]
  - Drug ineffective [Unknown]
  - Off label use [Unknown]
